FAERS Safety Report 9888043 (Version 1)
Quarter: 2014Q1

REPORT INFORMATION
  Report Type: Spontaneous
  Country: US (occurrence: None)
  Receive Date: 20140207
  Receipt Date: 20140207
  Transmission Date: 20141002
  Serious: Yes (Hospitalization)
  Sender: FDA-Public Use
  Company Number: None

PATIENT
  Age: 60 Year
  Sex: Male
  Weight: 78.9 kg

DRUGS (1)
  1. MINOXIDIL [Suspect]
     Route: 048
     Dates: start: 20121229, end: 20130803

REACTIONS (4)
  - Pericardial effusion [None]
  - Cardiac tamponade [None]
  - Atrial flutter [None]
  - Post procedural complication [None]
